FAERS Safety Report 13184656 (Version 1)
Quarter: 2017Q1

REPORT INFORMATION
  Report Type: Spontaneous
  Country: FR (occurrence: FR)
  Receive Date: 20170203
  Receipt Date: 20170203
  Transmission Date: 20170428
  Serious: Yes (Other)
  Sender: FDA-Public Use
  Company Number: FR-MYLANLABS-2017M1005621

PATIENT

DRUGS (17)
  1. LAMIVUDINE. [Suspect]
     Active Substance: LAMIVUDINE
     Dosage: UNK
     Dates: start: 200711, end: 201007
  2. PEGYLATED INTERFERON ALFA-2A [Suspect]
     Active Substance: PEGINTERFERON ALFA-2A
     Dosage: 135 MCG, UNK
     Dates: start: 200804, end: 200901
  3. PEGYLATED INTERFERON ALFA-2A [Suspect]
     Active Substance: PEGINTERFERON ALFA-2A
     Indication: CHRONIC HEPATITIS
     Dosage: 135 MCG, UNK
     Dates: start: 200401, end: 200412
  4. LAMIVUDINE. [Suspect]
     Active Substance: LAMIVUDINE
     Dosage: UNK
     Dates: start: 200505, end: 200707
  5. ABACAVIR. [Suspect]
     Active Substance: ABACAVIR
     Indication: HIV INFECTION
     Dosage: UNK
     Dates: start: 200311, end: 200407
  6. RIBAVIRIN MYLAN [Suspect]
     Active Substance: RIBAVIRIN
     Indication: CHRONIC HEPATITIS
     Dosage: 1000 MG, QD
     Dates: start: 200401, end: 200412
  7. RIBAVIRIN MYLAN [Suspect]
     Active Substance: RIBAVIRIN
     Dosage: 1200 MG,QD
     Dates: start: 200804, end: 200901
  8. LAMIVUDINE. [Suspect]
     Active Substance: LAMIVUDINE
     Dosage: UNK
     Dates: start: 200407, end: 200505
  9. ABACAVIR. [Suspect]
     Active Substance: ABACAVIR
     Dosage: UNK
     Dates: start: 200505, end: 200707
  10. LOPINAVIR/RITONAVIR [Suspect]
     Active Substance: LOPINAVIR\RITONAVIR
     Dosage: UNK
     Dates: start: 200711, end: 201007
  11. LAMIVUDINE. [Suspect]
     Active Substance: LAMIVUDINE
     Indication: HIV INFECTION
     Dosage: UNK
     Dates: start: 200311, end: 200407
  12. ABACAVIR. [Suspect]
     Active Substance: ABACAVIR
     Dosage: UNK
     Dates: start: 200711, end: 201007
  13. RIBAVIRIN MYLAN [Suspect]
     Active Substance: RIBAVIRIN
     Dosage: 600 MG, QD
     Dates: start: 200403, end: 200412
  14. ZIDOVUDINE. [Suspect]
     Active Substance: ZIDOVUDINE
     Indication: HIV INFECTION
     Dosage: UNK
     Dates: start: 200311, end: 200407
  15. ZIDOVUDINE. [Suspect]
     Active Substance: ZIDOVUDINE
     Dosage: UNK
     Dates: start: 200505, end: 200707
  16. ABACAVIR. [Suspect]
     Active Substance: ABACAVIR
     Dosage: UNK
     Dates: start: 200407, end: 200505
  17. LOPINAVIR/RITONAVIR [Suspect]
     Active Substance: LOPINAVIR\RITONAVIR
     Indication: HIV INFECTION
     Dosage: UNK
     Dates: start: 200407, end: 200505

REACTIONS (3)
  - Hepatitis C [Unknown]
  - Aspartate aminotransferase increased [Unknown]
  - Anaemia [Unknown]

NARRATIVE: CASE EVENT DATE: 200311
